FAERS Safety Report 9518016 (Version 2)
Quarter: 2013Q4

REPORT INFORMATION
  Report Type: Spontaneous
  Country: JP (occurrence: None)
  Receive Date: 20130910
  Receipt Date: 20131230
  Transmission Date: 20140711
  Serious: Yes (Hospitalization)
  Sender: FDA-Public Use
  Company Number: ABR_01101_2013

PATIENT
  Age: 78 Year
  Sex: Female
  Weight: 52.6 kg

DRUGS (1)
  1. GLIADEL (GLIADEL-CARMUSTINE)7.7MG (NOT SPECIFIED) [Suspect]
     Indication: MALIGNANT GLIOMA
     Dosage: 61.6 MG  1X (INTRACEREBRAL)
     Dates: start: 20130501, end: 20130501

REACTIONS (1)
  - White blood cell count decreased [None]
